FAERS Safety Report 4854510-3 (Version None)
Quarter: 2005Q4

REPORT INFORMATION
  Report Type: 
  Country: None (occurrence: None)
  Receive Date: 20051213
  Receipt Date: 20051201
  Transmission Date: 20060501
  Serious: Yes (Death)
  Sender: FDA-Public Use
  Company Number: 220170

PATIENT
  Sex: Male

DRUGS (1)
  1. MABTHERA (RITUXIMAB) CONC FOR SOLUTION FOR SOLUTION FOR INFUSION [Suspect]
     Indication: B-CELL LYMPHOMA

REACTIONS (1)
  - LUNG NEOPLASM MALIGNANT [None]
